FAERS Safety Report 5003917-2 (Version None)
Quarter: 2006Q2

REPORT INFORMATION
  Report Type: 
  Country: None (occurrence: None)
  Receive Date: 20060517
  Receipt Date: 20060306
  Transmission Date: 20061013
  Serious: Yes (Hospitalization, Other)
  Sender: FDA-Public Use
  Company Number: PHRM2006FR01013

PATIENT
  Age: 12 Year
  Sex: Female
  Weight: 44 kg

DRUGS (3)
  1. UN-ALFA [Concomitant]
     Dosage: 2 UG PER DAY
     Route: 048
     Dates: start: 20051107, end: 20051109
  2. CALCIUM SANDOZ FORTE D [Concomitant]
     Dosage: 500 MG, BID
     Route: 048
     Dates: start: 20051107, end: 20051109
  3. AREDIA [Suspect]
     Indication: OSTEOGENESIS IMPERFECTA
     Dosage: 40 MG, QD
     Route: 042
     Dates: start: 20051107, end: 20051109

REACTIONS (5)
  - BLOOD CALCIUM DECREASED [None]
  - HEADACHE [None]
  - PALPITATIONS [None]
  - PYREXIA [None]
  - VENTRICULAR EXTRASYSTOLES [None]
